FAERS Safety Report 12485374 (Version 1)
Quarter: 2016Q2

REPORT INFORMATION
  Report Type: Spontaneous
  Country: FR (occurrence: FR)
  Receive Date: 20160621
  Receipt Date: 20160621
  Transmission Date: 20160815
  Serious: Yes (Hospitalization)
  Sender: FDA-Public Use
  Company Number: FR-PFIZER INC-2016273738

PATIENT
  Age: 14 Year
  Sex: Female

DRUGS (6)
  1. NEURONTIN [Suspect]
     Active Substance: GABAPENTIN
     Indication: NEURALGIA
     Dosage: 300 MG, 1X/DAY
     Dates: start: 20160515, end: 20160515
  2. TRAMADOL. [Concomitant]
     Active Substance: TRAMADOL
     Dosage: 50 MG, 3 OR 4 DF DAILY
  3. NEURONTIN [Suspect]
     Active Substance: GABAPENTIN
     Dosage: 300 MG, 3X/DAY (MORNING, NOON AND EVENING)
     Dates: start: 20160518
  4. INORIAL [Concomitant]
     Active Substance: BILASTINE
     Dosage: 2 DF, DAILY
  5. DOLIPRANE [Concomitant]
     Active Substance: ACETAMINOPHEN
     Dosage: 1000 MG, UNK
  6. NEURONTIN [Suspect]
     Active Substance: GABAPENTIN
     Dosage: 300 MG, 2X/DAY
     Dates: start: 20160516, end: 20160517

REACTIONS (3)
  - Muscular weakness [Recovered/Resolved]
  - Vision blurred [Recovered/Resolved]
  - Myoclonus [Recovered/Resolved]

NARRATIVE: CASE EVENT DATE: 20160520
